FAERS Safety Report 5879383-1 (Version None)
Quarter: 2008Q3

REPORT INFORMATION
  Report Type: 
  Country: None (occurrence: None)
  Receive Date: 20080912
  Receipt Date: 20080910
  Transmission Date: 20090109
  Serious: Yes (Other)
  Sender: FDA-Public Use
  Company Number: B0480403A

PATIENT
  Sex: Male

DRUGS (3)
  1. SERETIDE DISKUS [Suspect]
     Indication: BRONCHIECTASIS
     Route: 065
     Dates: start: 20070710, end: 20070713
  2. ZINADOL [Concomitant]
     Dosage: 500MG TWICE PER DAY
     Dates: start: 20070710, end: 20070712
  3. BISOLVON [Concomitant]
     Dates: start: 20070718

REACTIONS (5)
  - CHEST PAIN [None]
  - INCORRECT DOSE ADMINISTERED [None]
  - MEDICATION ERROR [None]
  - PHARMACEUTICAL PRODUCT COMPLAINT [None]
  - RASH MACULAR [None]
